FAERS Safety Report 11828394 (Version 4)
Quarter: 2017Q1

REPORT INFORMATION
  Report Type: Spontaneous
  Country: GB (occurrence: GB)
  Receive Date: 20151211
  Receipt Date: 20170228
  Transmission Date: 20170428
  Serious: Yes (Hospitalization)
  Sender: FDA-Public Use
  Company Number: GB-VERTEX PHARMACEUTICALS-2015-005651

PATIENT
  Age: 10 Year
  Sex: Female

DRUGS (8)
  1. KALYDECO [Suspect]
     Active Substance: IVACAFTOR
     Dosage: UNK
     Route: 048
     Dates: start: 20160104
  2. CREON [Concomitant]
     Active Substance: PANCRELIPASE AMYLASE\PANCRELIPASE LIPASE\PANCRELIPASE PROTEASE
     Dosage: INCREASED
  3. FLUCLOXACILLIN [Concomitant]
     Active Substance: FLUCLOXACILLIN
  4. VITAMINS [Concomitant]
     Active Substance: VITAMINS
  5. KALYDECO [Suspect]
     Active Substance: IVACAFTOR
     Indication: CYSTIC FIBROSIS
     Dosage: 150 MG, BID
     Route: 048
     Dates: start: 20130326, end: 20151204
  6. OMEPRAZOLE. [Concomitant]
     Active Substance: OMEPRAZOLE
  7. VITAMIN E [Concomitant]
     Active Substance: .ALPHA.-TOCOPHEROL
  8. VITAMIN K [Concomitant]
     Active Substance: PHYTONADIONE

REACTIONS (6)
  - Myelitis transverse [Recovering/Resolving]
  - Chest pain [Recovering/Resolving]
  - Cough [Unknown]
  - Vision blurred [Recovered/Resolved]
  - Lethargy [Unknown]
  - Cystic fibrosis related diabetes [Recovering/Resolving]

NARRATIVE: CASE EVENT DATE: 20151203
